FAERS Safety Report 8170871 (Version 7)
Quarter: 2013Q1

REPORT INFORMATION
  Report Type: Report from Study
  Country: JP (occurrence: JP)
  Receive Date: 20111006
  Receipt Date: 20130131
  Transmission Date: 20140127
  Serious: Yes (Hospitalization)
  Sender: FDA-Public Use
  Company Number: PHHO2010JP02807

PATIENT
  Age: 69 Year
  Sex: Female
  Weight: 54 kg

DRUGS (18)
  1. BLINDED AFINITOR [Suspect]
     Indication: BREAST CANCER METASTATIC
     Dosage: CODE NOT BROKEN
     Route: 048
     Dates: start: 20091222, end: 20100207
  2. BLINDED NO TREATMENT RECEIVED [Suspect]
     Indication: BREAST CANCER METASTATIC
     Dosage: CODE NOT BROKEN
     Route: 048
     Dates: start: 20091222, end: 20100207
  3. BLINDED PLACEBO [Suspect]
     Indication: BREAST CANCER METASTATIC
     Dosage: CODE NOT BROKEN
     Route: 048
     Dates: start: 20091222, end: 20100207
  4. FUROSEMIDE [Suspect]
  5. SULFAMETHOXAZOLE+TRIMETHOPRIM [Suspect]
  6. COMPARATOR TRASTUZUMAB [Suspect]
     Indication: BREAST CANCER METASTATIC
     Dosage: 215 MG, UNK
     Dates: end: 20101207
  7. COMPARATOR PACLITAXEL [Suspect]
     Indication: BREAST CANCER METASTATIC
     Dosage: 112 MG, UNK
     Dates: end: 20100315
  8. COMPARATOR PACLITAXEL [Suspect]
     Dosage: UNK
     Dates: start: 20100329, end: 20101102
  9. PREDONINE [Concomitant]
  10. HIRUDOID [Concomitant]
     Indication: DERMATOSIS
  11. IMIDAPRIL HYDROCHLORIDE [Concomitant]
     Indication: HYPERTENSION
  12. LOXOPROFEN SODIUM [Concomitant]
     Indication: PAIN
  13. FLAVOXATE HYDROCHLORIDE [Concomitant]
     Indication: POLLAKIURIA
  14. LAXOBERON [Concomitant]
     Indication: CONSTIPATION
  15. VANCOMYCIN [Concomitant]
  16. CEFAZOLIN SODIUM [Concomitant]
  17. AMITRIPTYLINE HYDROCHLORIDE [Concomitant]
  18. AZUNOL [Concomitant]
     Indication: DECUBITUS ULCER

REACTIONS (11)
  - Pneumocystis jirovecii pneumonia [Recovered/Resolved]
  - C-reactive protein increased [Recovered/Resolved]
  - Pleural effusion [Recovered/Resolved]
  - Epistaxis [Recovered/Resolved]
  - Anaemia [Recovering/Resolving]
  - Hyperglycaemia [Recovered/Resolved]
  - Blood potassium decreased [Recovering/Resolving]
  - Renal impairment [Recovered/Resolved]
  - Ascites [Recovered/Resolved]
  - Liver disorder [Recovered/Resolved]
  - Cerebral ischaemia [Unknown]
